FAERS Safety Report 8331681 (Version 6)
Quarter: 2012Q4

REPORT INFORMATION
  Report Type: 
  Country: US (occurrence: US)
  Receive Date: 20120111
  Receipt Date: 20120919
  Transmission Date: 20130627
  Serious: Yes (Hospitalization, Other)
  Sender: FDA-Public Use
  Company Number: US-009507513-1201USA00753

PATIENT

DRUGS (2)
  1. FOSAMAX [Suspect]
     Indication: OSTEOPENIA
     Dosage: 10 mg, qd
     Route: 048
     Dates: start: 1999
  2. FOSAMAX [Suspect]
     Indication: OSTEOPOROSIS
     Dosage: 70 mg, UNK
     Route: 048
     Dates: start: 2000, end: 20080720

REACTIONS (39)
  - Post procedural haemorrhage [Unknown]
  - Spondylolisthesis [Unknown]
  - Arthrodesis [Unknown]
  - Lumbar spinal stenosis [Unknown]
  - Femur fracture [Unknown]
  - Low turnover osteopathy [Unknown]
  - Hand fracture [Unknown]
  - Alanine aminotransferase increased [Unknown]
  - Hypertension [Unknown]
  - Hypercholesterolaemia [Unknown]
  - Appendix disorder [Unknown]
  - Conjunctivitis infective [Recovered/Resolved]
  - Arthritis [Unknown]
  - Gastrooesophagitis [Unknown]
  - Osteoarthritis [Unknown]
  - Bronchitis [Unknown]
  - Anxiety [Unknown]
  - Lumbar radiculopathy [Unknown]
  - Spinal osteoarthritis [Unknown]
  - Cyst [Unknown]
  - Retinal disorder [Unknown]
  - Visual acuity reduced [Unknown]
  - Nervousness [Unknown]
  - Arthropod bite [Unknown]
  - Nodule [Unknown]
  - Herpes zoster [Unknown]
  - Thermal burn [Unknown]
  - Foot fracture [Unknown]
  - Infection [Unknown]
  - Helicobacter test positive [Unknown]
  - Electrocardiogram ST segment [Unknown]
  - Liver function test abnormal [Unknown]
  - Anaemia [Unknown]
  - Peptic ulcer [Unknown]
  - Pyrexia [Recovered/Resolved]
  - Muscle spasms [Unknown]
  - Dyspepsia [Recovering/Resolving]
  - Gastrooesophageal reflux disease [Unknown]
  - Muscle spasms [Unknown]
